FAERS Safety Report 9379991 (Version 2)
Quarter: 2013Q3

REPORT INFORMATION
  Report Type: Spontaneous
  Country: JP (occurrence: JP)
  Receive Date: 20130702
  Receipt Date: 20130724
  Transmission Date: 20140515
  Serious: Yes (Hospitalization)
  Sender: FDA-Public Use
  Company Number: JP-ROCHE-1240313

PATIENT
  Age: 82 Year
  Sex: Male

DRUGS (5)
  1. RITUXIMAB [Suspect]
     Indication: BURKITT^S LYMPHOMA
     Route: 042
  2. CARBOPLATIN [Concomitant]
     Indication: BURKITT^S LYMPHOMA
  3. IFOSFAMIDE [Concomitant]
     Indication: BURKITT^S LYMPHOMA
  4. ETOPOSIDE [Concomitant]
     Indication: BURKITT^S LYMPHOMA
  5. DEXAMETHASONE [Concomitant]
     Indication: BURKITT^S LYMPHOMA

REACTIONS (1)
  - Metastases to meninges [Unknown]
